FAERS Safety Report 6805888-2 (Version None)
Quarter: 2010Q2

REPORT INFORMATION
  Report Type: 
  Country: None (occurrence: None)
  Receive Date: 20100629
  Receipt Date: 20071022
  Transmission Date: 20101027
  Serious: No
  Sender: FDA-Public Use
  Company Number: US-PFIZER INC-2007076529

PATIENT
  Sex: Male
  Weight: 75.3 kg

DRUGS (5)
  1. VIAGRA [Suspect]
     Indication: ERECTILE DYSFUNCTION
  2. LISINOPRIL [Concomitant]
     Indication: HYPERTENSION
  3. THYROID TAB [Concomitant]
     Indication: THYROID DISORDER
  4. ALL OTHER THERAPEUTIC PRODUCTS [Concomitant]
     Indication: GASTROOESOPHAGEAL REFLUX DISEASE
  5. FINASTERIDE [Concomitant]
     Indication: PROSTATIC DISORDER

REACTIONS (2)
  - DRUG INEFFECTIVE [None]
  - HEADACHE [None]
